FAERS Safety Report 13754461 (Version 6)
Quarter: 2018Q3

REPORT INFORMATION
  Report Type: Spontaneous
  Country: IT (occurrence: IT)
  Receive Date: 20170714
  Receipt Date: 20180814
  Transmission Date: 20181010
  Serious: Yes (Hospitalization, Other)
  Sender: FDA-Public Use
  Company Number: IT-TEVA-784984ACC

PATIENT
  Age: 50 Year
  Sex: Male

DRUGS (5)
  1. CYMBALTA [Concomitant]
     Active Substance: DULOXETINE HYDROCHLORIDE
     Indication: PRODUCT USED FOR UNKNOWN INDICATION
     Route: 065
  2. BISOPROLOL FUMARATE. [Suspect]
     Active Substance: BISOPROLOL FUMARATE
     Indication: SUICIDAL IDEATION
     Route: 048
     Dates: start: 20160521, end: 20160521
  3. LYRICA [Suspect]
     Active Substance: PREGABALIN
     Indication: SUICIDAL IDEATION
     Route: 048
     Dates: start: 20160521, end: 20160521
  4. ASPIRINETTA ? 100 MG COMPRESSE [Concomitant]
     Active Substance: ASPIRIN
     Indication: PRODUCT USED FOR UNKNOWN INDICATION
     Route: 065
  5. LASIX FIALE ? SANOFI?AVENTIS DEUTSCHLAND GMBH [Suspect]
     Active Substance: FUROSEMIDE
     Indication: SUICIDAL IDEATION
     Route: 048
     Dates: start: 20160521, end: 20160521

REACTIONS (4)
  - Malaise [Recovering/Resolving]
  - Drug abuse [Recovering/Resolving]
  - Suicide attempt [Recovering/Resolving]
  - Muscle spasms [Recovering/Resolving]

NARRATIVE: CASE EVENT DATE: 20160521
